FAERS Safety Report 4708153-2 (Version None)
Quarter: 2005Q3

REPORT INFORMATION
  Report Type: 
  Country: None (occurrence: None)
  Receive Date: 20050707
  Receipt Date: 20050610
  Transmission Date: 20060218
  Serious: Yes (Hospitalization, Other)
  Sender: FDA-Public Use
  Company Number: US-AMGEN-US138500

PATIENT
  Sex: Male

DRUGS (3)
  1. PROCRIT [Suspect]
     Indication: MYELODYSPLASTIC SYNDROME
     Route: 058
     Dates: start: 20050318, end: 20050603
  2. INDOMETHACIN [Concomitant]
     Dates: start: 20050412, end: 20050520
  3. NIFEREX [Concomitant]
     Route: 048
     Dates: start: 20050318

REACTIONS (4)
  - APLASIA PURE RED CELL [None]
  - HEADACHE [None]
  - HERNIA REPAIR [None]
  - NECK PAIN [None]
